FAERS Safety Report 7369431-4 (Version None)
Quarter: 2011Q1

REPORT INFORMATION
  Report Type: 
  Country: None (occurrence: None)
  Receive Date: 20110323
  Receipt Date: 20110309
  Transmission Date: 20110831
  Serious: Yes (Hospitalization, Other)
  Sender: FDA-Public Use
  Company Number: BE-JNJFOC-20110308413

PATIENT
  Age: 75 Year
  Sex: Female

DRUGS (10)
  1. TRAMADOL HYDROCHOLRIDE [Concomitant]
     Route: 065
  2. SALMETEROL [Concomitant]
     Route: 065
  3. BUDESONIDE [Concomitant]
     Route: 065
  4. DIGOXIN [Concomitant]
     Route: 065
  5. TRIAMTERENE [Concomitant]
     Route: 065
  6. FUROSEMIDE [Concomitant]
     Route: 065
  7. ITRACONAZOLE [Suspect]
     Indication: BODY TINEA
     Route: 065
  8. METHYLPREDNISOLONE ACETATE [Concomitant]
     Route: 065
  9. CALCIUM [Concomitant]
     Route: 065
  10. BUDESONIDE [Concomitant]
     Route: 065

REACTIONS (4)
  - HEPATITIS [None]
  - VANISHING BILE DUCT SYNDROME [None]
  - HEPATOTOXICITY [None]
  - HEPATOBILIARY DISEASE [None]
